FAERS Safety Report 7268182-4 (Version None)
Quarter: 2011Q1

REPORT INFORMATION
  Report Type: 
  Country: None (occurrence: None)
  Receive Date: 20110201
  Receipt Date: 20110120
  Transmission Date: 20110831
  Serious: Yes (Other)
  Sender: FDA-Public Use
  Company Number: PHFR2010GB01638

PATIENT
  Sex: Male

DRUGS (8)
  1. FYBOGEL [Concomitant]
     Dosage: UNK
     Route: 048
  2. TESTOSTERONE [Concomitant]
     Dosage: UNK
  3. PIRENZEPINE [Concomitant]
     Route: 048
  4. VENLAFAXINE [Concomitant]
     Indication: DEPRESSION
     Dosage: UNK
     Route: 048
  5. LAMOTRIGINE [Concomitant]
     Indication: SCHIZOPHRENIA
     Dosage: UNK
     Route: 048
  6. CLOZARIL [Suspect]
     Indication: SCHIZOPHRENIA
     Dosage: UNK
     Route: 048
     Dates: start: 20040603
  7. ARIPIPRAZOLE [Concomitant]
     Indication: SCHIZOPHRENIA
     Dosage: UNK
     Route: 048
  8. OXYBUTYNIN [Concomitant]
     Dosage: UNK
     Route: 048

REACTIONS (2)
  - THROMBOCYTOPENIA [None]
  - HAEMOGLOBIN INCREASED [None]
